FAERS Safety Report 5515057-4 (Version None)
Quarter: 2007Q4

REPORT INFORMATION
  Report Type: 
  Country: None (occurrence: None)
  Receive Date: 20071113
  Receipt Date: 20061206
  Transmission Date: 20080405
  Serious: No
  Sender: FDA-Public Use
  Company Number: A0630622A

PATIENT
  Age: 78 Year
  Sex: Female

DRUGS (7)
  1. COREG [Suspect]
     Indication: HYPERTENSION
     Dosage: 50MG TWICE PER DAY
     Route: 048
  2. LISINOPRIL [Concomitant]
  3. TORSEMIDE [Concomitant]
  4. POTASSIUM CHLORIDE [Concomitant]
  5. GLIPIZIDE [Concomitant]
  6. GLUCOTROL [Concomitant]
  7. BYETTA [Concomitant]

REACTIONS (1)
  - CHEST PAIN [None]
